FAERS Safety Report 7329791-7 (Version None)
Quarter: 2011Q1

REPORT INFORMATION
  Report Type: 
  Country: None (occurrence: None)
  Receive Date: 20110303
  Receipt Date: 20110221
  Transmission Date: 20110831
  Serious: Yes (Death, Other)
  Sender: FDA-Public Use
  Company Number: US-TEVA-268594USA

PATIENT
  Age: 47 Year
  Sex: Female

DRUGS (3)
  1. BEVACIZUMAB [Suspect]
     Indication: BRAIN NEOPLASM
     Dosage: 2 WEEKLY
  2. TEMOZOLOMIDE [Concomitant]
  3. DEXAMETHASONE SODIUM PHOSPHATE [Suspect]
     Indication: BRAIN NEOPLASM
     Dosage: 1900.5 MG TOTAL

REACTIONS (5)
  - CUSHINGOID [None]
  - SKIN STRIAE [None]
  - DEATH [None]
  - SKIN ULCER [None]
  - MYOPATHY [None]
